FAERS Safety Report 7072795-2 (Version None)
Quarter: 2010Q4

REPORT INFORMATION
  Report Type: 
  Country: None (occurrence: None)
  Receive Date: 20101029
  Receipt Date: 20100315
  Transmission Date: 20110411
  Serious: No
  Sender: FDA-Public Use
  Company Number: A0850243A

PATIENT
  Age: 68 Year
  Sex: Female

DRUGS (8)
  1. ADVAIR DISKUS 100/50 [Suspect]
     Indication: CHRONIC OBSTRUCTIVE PULMONARY DISEASE
     Dosage: 1PUFF TWICE PER DAY
     Route: 055
     Dates: start: 20030101
  2. SPIRIVA [Concomitant]
  3. WARFARIN SODIUM [Concomitant]
  4. SIMVASTATIN [Concomitant]
  5. ALENDRONATE SODIUM [Concomitant]
  6. LYRICA [Concomitant]
  7. EFFEXOR [Concomitant]
  8. TEGRETOL [Concomitant]

REACTIONS (1)
  - DYSPHONIA [None]
